FAERS Safety Report 9569265 (Version 1)
Quarter: 2013Q3

REPORT INFORMATION
  Report Type: Spontaneous
  Country: US (occurrence: US)
  Receive Date: 20130930
  Receipt Date: 20130930
  Transmission Date: 20140515
  Serious: No
  Sender: FDA-Public Use
  Company Number: US-AMGEN-USASP2013058590

PATIENT
  Age: 54 Year
  Sex: Female
  Weight: 47.17 kg

DRUGS (12)
  1. ENBREL [Suspect]
     Indication: PRODUCT USED FOR UNKNOWN INDICATION
     Dosage: 50 MG, QWK
     Route: 058
  2. CYMBALTA [Concomitant]
     Dosage: 20 MG, UNK
  3. PHENERGAN                          /00033001/ [Concomitant]
     Dosage: 25 MG, UNK
  4. XANAX [Concomitant]
     Dosage: 2 MG, UNK
  5. METHOTREXATE [Concomitant]
     Dosage: 2.5 MG, UNK
  6. PREDNISONE [Concomitant]
     Dosage: 1 MG, UNK
  7. FIORINAL WITH CODEINE [Concomitant]
     Dosage: 30 MG, UNK
  8. ZANAFLEX [Concomitant]
     Dosage: 2 MG, UNK
  9. VAGISIL                            /00104701/ [Concomitant]
     Dosage: UNK
  10. PERCOCET                           /00867901/ [Concomitant]
     Dosage: 5-325 MG, UNK
  11. KADIAN [Concomitant]
     Dosage: 30 MG, UNK
  12. FOLIC ACID [Concomitant]
     Dosage: UNK

REACTIONS (1)
  - Pyrexia [Unknown]
